FAERS Safety Report 5773690-9 (Version None)
Quarter: 2008Q2

REPORT INFORMATION
  Report Type: 
  Country: None (occurrence: None)
  Receive Date: 20080616
  Receipt Date: 20080610
  Transmission Date: 20081010
  Serious: Yes (Death)
  Sender: FDA-Public Use
  Company Number: JP-BRISTOL-MYERS SQUIBB COMPANY-14223325

PATIENT
  Age: 54 Year
  Sex: Male

DRUGS (5)
  1. BARACLUDE [Suspect]
     Indication: HEPATITIS B
     Route: 048
     Dates: start: 20080218, end: 20080301
  2. FUROSEMIDE [Concomitant]
     Route: 048
     Dates: start: 20080218, end: 20080301
  3. SPIRONOLACTONE [Concomitant]
     Route: 048
     Dates: start: 20080218, end: 20080301
  4. FAMOTIDINE [Concomitant]
     Route: 048
     Dates: start: 20080218, end: 20080301
  5. LIVACT [Concomitant]
     Route: 048
     Dates: start: 20080218, end: 20080301

REACTIONS (1)
  - HEPATIC FAILURE [None]
